FAERS Safety Report 9233577 (Version 1)
Quarter: 2013Q2

REPORT INFORMATION
  Report Type: Spontaneous
  Country: US (occurrence: None)
  Receive Date: 20130415
  Receipt Date: 20130415
  Transmission Date: 20140414
  Serious: Yes (Other)
  Sender: FDA-Public Use
  Company Number: None

PATIENT
  Age: 23 Year
  Sex: Male
  Weight: 106.6 kg

DRUGS (1)
  1. AMPHETAMINE SALTS ER 20MG [Suspect]
     Indication: ATTENTION DEFICIT/HYPERACTIVITY DISORDER
     Route: 048
     Dates: start: 20130406, end: 20130412

REACTIONS (6)
  - Irritability [None]
  - Drug ineffective [None]
  - Memory impairment [None]
  - Frustration [None]
  - Anger [None]
  - Product substitution issue [None]
